FAERS Safety Report 20144564 (Version 1)
Quarter: 2021Q4

REPORT INFORMATION
  Report Type: Spontaneous
  Country: CN (occurrence: None)
  Receive Date: 20211203
  Receipt Date: 20211203
  Transmission Date: 20220303
  Serious: Yes (Death)
  Sender: FDA-Public Use
  Company Number: 2021A851074

PATIENT
  Age: 74 Year
  Sex: Male
  Weight: 65 kg

DRUGS (3)
  1. IMFINZI [Suspect]
     Active Substance: DURVALUMAB
     Indication: Non-small cell lung cancer stage III
     Dosage: 620MG/CYCLE
     Route: 042
     Dates: start: 20201113, end: 20201208
  2. IMFINZI [Suspect]
     Active Substance: DURVALUMAB
     Indication: Chemotherapy
     Dosage: 620MG/CYCLE
     Route: 042
     Dates: start: 20201113, end: 20201208
  3. IMFINZI [Suspect]
     Active Substance: DURVALUMAB
     Indication: Radiotherapy
     Dosage: 620MG/CYCLE
     Route: 042
     Dates: start: 20201113, end: 20201208

REACTIONS (1)
  - Death [Fatal]

NARRATIVE: CASE EVENT DATE: 20211001
